FAERS Safety Report 5711854-0 (Version None)
Quarter: 2008Q2

REPORT INFORMATION
  Report Type: 
  Country: None (occurrence: None)
  Receive Date: 20080421
  Receipt Date: 20080325
  Transmission Date: 20081010
  Serious: No
  Sender: FDA-Public Use
  Company Number: US-BOEHRINGER INGELHEIM GMBH, GERMANY-2008-BP-04607BP

PATIENT
  Age: 81 Year
  Sex: Female

DRUGS (1)
  1. FLOMAX [Suspect]
     Indication: INCONTINENCE
     Route: 048
     Dates: start: 20080324

REACTIONS (1)
  - EPISTAXIS [None]
